FAERS Safety Report 6578155-2 (Version None)
Quarter: 2010Q1

REPORT INFORMATION
  Report Type: 
  Country: None (occurrence: None)
  Receive Date: 20100211
  Receipt Date: 20100201
  Transmission Date: 20100710
  Serious: Yes (Other)
  Sender: FDA-Public Use
  Company Number: US-PFIZER INC-2010007313

PATIENT
  Sex: Female

DRUGS (4)
  1. ZOLOFT [Suspect]
     Indication: ANXIETY
     Dosage: 25 MG
     Dates: start: 20091201, end: 20100104
  2. REBIF [Suspect]
     Indication: MULTIPLE SCLEROSIS
     Dosage: 8.8 MCG, 3 IN 1 WEEKS
     Route: 058
     Dates: start: 20091218, end: 20100101
  3. REBIF [Suspect]
     Dosage: 22 MCG, 3 IN 1 WEEKS
     Route: 058
     Dates: start: 20100101, end: 20100106
  4. KLONOPIN [Concomitant]
     Indication: ANXIETY
     Dosage: UNK
     Dates: start: 20091201, end: 20100101

REACTIONS (5)
  - ANGIOEDEMA [None]
  - BALANCE DISORDER [None]
  - HYPOAESTHESIA [None]
  - SENSATION OF HEAVINESS [None]
  - STRESS [None]
